FAERS Safety Report 6154863-2 (Version None)
Quarter: 2009Q2

REPORT INFORMATION
  Report Type: 
  Country: None (occurrence: None)
  Receive Date: 20090414
  Receipt Date: 20090402
  Transmission Date: 20091009
  Serious: Yes (Life-Threatening)
  Sender: FDA-Public Use
  Company Number: JP-PFIZER INC-2009188572

PATIENT

DRUGS (4)
  1. SUNITINIB MALATE [Suspect]
     Indication: RENAL CELL CARCINOMA
     Dosage: 50 MG, 1X/DAY
     Route: 048
     Dates: start: 20090205, end: 20090215
  2. PLETAL [Concomitant]
     Dosage: UNK
     Route: 048
     Dates: start: 20081222
  3. NORVASC [Concomitant]
     Dosage: UNK
     Route: 048
  4. MITIGLINIDE [Concomitant]
     Dosage: UNK
     Route: 048

REACTIONS (1)
  - GINGIVAL INFECTION [None]
